FAERS Safety Report 7768268-1 (Version None)
Quarter: 2011Q3

REPORT INFORMATION
  Report Type: 
  Country: None (occurrence: None)
  Receive Date: 20110922
  Receipt Date: 20100412
  Transmission Date: 20111222
  Serious: No
  Sender: FDA-Public Use
  Company Number: US-ASTRAZENECA-2010SE50028

PATIENT
  Sex: Female

DRUGS (6)
  1. EFFEXOR XR [Concomitant]
     Route: 048
     Dates: start: 20050623
  2. SEROQUEL [Suspect]
     Indication: AGITATION
     Dosage: 25 MG TO 200 MG
     Route: 048
     Dates: start: 20050107
  3. RISPERDAL [Concomitant]
     Route: 048
     Dates: start: 20051216
  4. PROMETHAZINE [Concomitant]
     Route: 048
     Dates: start: 20050625
  5. SEROQUEL [Suspect]
     Indication: ANXIETY
     Dosage: 25 MG TO 200 MG
     Route: 048
     Dates: start: 20050107
  6. DICYCLOMINE [Concomitant]
     Route: 048
     Dates: start: 20050625

REACTIONS (1)
  - ILL-DEFINED DISORDER [None]
